FAERS Safety Report 6343156-6 (Version None)
Quarter: 2009Q3

REPORT INFORMATION
  Report Type: 
  Country: None (occurrence: None)
  Receive Date: 20090908
  Receipt Date: 20090831
  Transmission Date: 20100115
  Serious: No
  Sender: FDA-Public Use
  Company Number: US-B.I. PHARMACEUTICALS,INC./RIDGEFIELD-2009-BP-09511BP

PATIENT
  Sex: Male

DRUGS (4)
  1. MOBIC [Suspect]
     Indication: BACK PAIN
     Dosage: 15 MG
     Route: 048
     Dates: start: 20090707
  2. MOBIC [Suspect]
     Indication: INTERVERTEBRAL DISC PROTRUSION
  3. LIPITOR [Concomitant]
     Indication: BLOOD CHOLESTEROL INCREASED
     Dosage: 10 MG
  4. XALATAN GTT [Concomitant]
     Indication: GLAUCOMA

REACTIONS (5)
  - ANXIETY [None]
  - BACK PAIN [None]
  - DRY MOUTH [None]
  - HOT FLUSH [None]
  - NIGHT SWEATS [None]
